FAERS Safety Report 12640596 (Version 1)
Quarter: 2016Q3

REPORT INFORMATION
  Report Type: Spontaneous
  Country: DE (occurrence: DE)
  Receive Date: 20160810
  Receipt Date: 20160810
  Transmission Date: 20161109
  Serious: Yes (Congenital Anomaly, Other)
  Sender: FDA-Public Use
  Company Number: DE-009507513-1608DEU001460

PATIENT
  Age: 1 Day
  Sex: Male
  Weight: 2.6 kg

DRUGS (5)
  1. MIRTAZAPINE. [Suspect]
     Active Substance: MIRTAZAPINE
     Dosage: 30 MG/DAY/ FROM GESTATIONAL WEEK 33+5 REGULARLY
     Route: 064
  2. LORAZEPAM. [Suspect]
     Active Substance: LORAZEPAM
     Dosage: 0.5 MG/DAY/ FROM GESTATIONAL WEEK 33+5   0.5MG DAILY, UNTIL GESTATIONAL WEEK 33+5 IRREGULARLY
     Route: 064
  3. RISPERIDONE. [Suspect]
     Active Substance: RISPERIDONE
     Dosage: 2 X 1 MG/D, TRIMESTER 3RD
     Route: 064
  4. SEROQUEL [Suspect]
     Active Substance: QUETIAPINE FUMARATE
     Dosage: 900 MG/DAY/ FROM GESTATIONAL WEEK 33+5 REGULARLY
     Route: 064
  5. VENLAFAXINE HYDROCHLORIDE. [Suspect]
     Active Substance: VENLAFAXINE HYDROCHLORIDE
     Dosage: 150 MG/DAY/ START UNKNOWN, PROBABLY THIRD TRIMESTER
     Route: 064

REACTIONS (5)
  - Selective eating disorder [Recovered/Resolved]
  - Arachnoid cyst [Unknown]
  - Congenital central nervous system anomaly [Not Recovered/Not Resolved]
  - Small for dates baby [Recovering/Resolving]
  - Respiratory disorder neonatal [Recovered/Resolved]

NARRATIVE: CASE EVENT DATE: 20160403
